FAERS Safety Report 6230820-2 (Version None)
Quarter: 2009Q2

REPORT INFORMATION
  Report Type: 
  Country: None (occurrence: None)
  Receive Date: 20090616
  Receipt Date: 20090603
  Transmission Date: 20091009
  Serious: Yes (Other)
  Sender: FDA-Public Use
  Company Number: US-PFIZER INC-2008156830

PATIENT
  Sex: Female
  Weight: 79.365 kg

DRUGS (26)
  1. CHANTIX [Suspect]
     Indication: SMOKING CESSATION THERAPY
     Dosage: FREQUENCY: EVERY DAY;
     Route: 048
     Dates: start: 20070101
  2. CHANTIX [Suspect]
     Indication: TOBACCO ABUSE
     Dosage: UNK
     Route: 048
     Dates: start: 20081113
  3. IMDUR [Concomitant]
     Dosage: 90 MG, 1X/DAY
     Route: 048
  4. AGGRENOX [Concomitant]
     Dosage: 200 MG, 2X/DAY
     Route: 048
  5. LOPRESSOR [Concomitant]
     Dosage: 50 MG, 2X/DAY
     Route: 048
  6. LISINOPRIL [Concomitant]
     Dosage: 20 MG, 1X/DAY
     Route: 048
  7. NOVOLOG [Concomitant]
     Dosage: 12 IU, 3X/DAY
  8. LANTUS [Concomitant]
     Dosage: UNK
     Route: 058
  9. ACTOS [Concomitant]
     Dosage: 45 MG, 1X/DAY
     Route: 048
  10. VYTORIN [Concomitant]
  11. ATIVAN [Concomitant]
     Dosage: 2 MG, 3X/DAY
     Route: 048
  12. CYMBALTA [Concomitant]
     Dosage: UNK
     Route: 048
  13. SINGULAIR [Concomitant]
     Dosage: 10 MG, 1X/DAY
     Route: 048
  14. NEXIUM [Concomitant]
     Dosage: 40 MG, 1X/DAY
     Route: 048
  15. ACETYLSALICYLIC ACID [Concomitant]
     Dosage: UNK
     Route: 048
  16. TRAMADOL HYDROCHLORIDE [Concomitant]
     Dosage: 1 TO 2 EVERY 8 HOURS
     Route: 048
  17. LASIX [Concomitant]
     Dosage: 40 MG, 1X/DAY
     Route: 048
  18. OXYGEN [Concomitant]
     Dosage: AT BEDTIME
  19. PROMETHAZINE HYDROCHLORIDE [Concomitant]
     Dosage: 25 MG, 4X/DAY
  20. FLONASE [Concomitant]
     Dosage: 50 UNK, UNK
  21. CLARITIN [Concomitant]
     Dosage: 10 MG, 1X/DAY
  22. XOPENEX [Concomitant]
     Dosage: 2 PUFFS EVERY 6 HOURS
  23. LIDODERM [Concomitant]
     Dosage: UNK
  24. NITROSTAT [Concomitant]
     Dosage: 0.4 MG, AS NEEDED
     Route: 060
  25. FAMOTIDINE [Concomitant]
     Dosage: 20 MG, 1X/DAY
  26. BACTRIM DS [Concomitant]
     Dosage: 800 MG, 2X/DAY

REACTIONS (7)
  - AGITATION [None]
  - ANGINA PECTORIS [None]
  - ARTERIAL OCCLUSIVE DISEASE [None]
  - HYPERSENSITIVITY [None]
  - PALPITATIONS [None]
  - PANIC ATTACK [None]
  - URTICARIA [None]
